FAERS Safety Report 7438322-2 (Version None)
Quarter: 2011Q2

REPORT INFORMATION
  Report Type: 
  Country: None (occurrence: None)
  Receive Date: 20110426
  Receipt Date: 20110415
  Transmission Date: 20111010
  Serious: Yes (Death)
  Sender: FDA-Public Use
  Company Number: US-CELGENEUS-163-21880-11042269

PATIENT
  Sex: Male

DRUGS (20)
  1. COLCHICINE [Concomitant]
     Dosage: .6 MILLIGRAM
     Route: 048
  2. GLIPIZIDE [Concomitant]
     Dosage: 10 MILLIGRAM
     Route: 048
  3. VITAMIN B-12 [Concomitant]
     Dosage: 1000
     Route: 048
  4. ULORIC [Concomitant]
     Dosage: 40 MILLIGRAM
     Route: 048
  5. DIGOXIN [Concomitant]
     Dosage: .125 MILLIGRAM
     Route: 048
  6. JANUVIA [Concomitant]
     Dosage: 50 MILLIGRAM
     Route: 048
  7. MEGACE [Concomitant]
     Dosage: 40MG/ML
     Route: 048
  8. TAMSULOSIN [Concomitant]
     Dosage: .4 MILLIGRAM
     Route: 048
  9. LASIX [Concomitant]
     Dosage: 40 MILLIGRAM
     Route: 048
  10. PREDNISONE [Concomitant]
     Dosage: 1 MILLIGRAM
     Route: 048
  11. VITAMIN B6 [Concomitant]
     Dosage: 250 MILLIGRAM
     Route: 048
  12. LANTUS [Concomitant]
     Dosage: 100/ML
     Route: 065
  13. METOPROLOL [Concomitant]
     Dosage: 50 MILLIGRAM
     Route: 065
  14. OXYCODONE [Concomitant]
     Dosage: 5 MILLIGRAM
     Route: 048
  15. COUMADIN [Concomitant]
     Dosage: 2 MILLIGRAM
     Route: 048
  16. LOVASTATIN [Concomitant]
     Dosage: 20 MILLIGRAM
     Route: 048
  17. MULTI-VITAMINS [Concomitant]
     Route: 048
  18. PROCRIT [Concomitant]
     Dosage: 10000/ML
     Route: 065
  19. LISINOPRIL [Concomitant]
     Dosage: 10 MILLIGRAM
     Route: 048
  20. REVLIMID [Suspect]
     Indication: LYMPHOPROLIFERATIVE DISORDER
     Dosage: 5 MILLIGRAM
     Route: 048
     Dates: start: 20101028, end: 20110414

REACTIONS (1)
  - DEATH [None]
